FAERS Safety Report 12369162 (Version 3)
Quarter: 2018Q1

REPORT INFORMATION
  Report Type: Spontaneous
  Country: US (occurrence: US)
  Receive Date: 20160513
  Receipt Date: 20180116
  Transmission Date: 20180508
  Serious: Yes (Other)
  Sender: FDA-Public Use
  Company Number: US-TEVA-659634USA

PATIENT
  Age: 29 Year
  Sex: Male

DRUGS (1)
  1. DOXORUBICIN [Suspect]
     Active Substance: DOXORUBICIN
     Indication: ALVEOLAR RHABDOMYOSARCOMA
     Dosage: LIFE-TIME EXPOSURE OF 350 MG/M2
     Route: 065

REACTIONS (4)
  - Cardiomyopathy [Recovered/Resolved]
  - Acute left ventricular failure [Recovered/Resolved]
  - Hypothyroidism [Recovering/Resolving]
  - Pericardial effusion [Recovered/Resolved]

NARRATIVE: CASE EVENT DATE: 20140410
